FAERS Safety Report 8872079 (Version 1)
Quarter: 2012Q4

REPORT INFORMATION
  Report Type: 
  Country: US (occurrence: US)
  Receive Date: 20121026
  Receipt Date: 20121026
  Transmission Date: 20130627
  Serious: No
  Sender: FDA-Public Use
  Company Number: US-AMGEN-USASP2012049311

PATIENT
  Age: 48 Year
  Sex: Male
  Weight: 82.99 kg

DRUGS (6)
  1. ENBREL [Suspect]
     Indication: PRODUCT USED FOR UNKNOWN INDICATION
     Dosage: 50 mg/ml, qwk
  2. TRICOR                             /00090101/ [Concomitant]
     Dosage: 145 mg, UNK
  3. ASPIRIN [Concomitant]
     Dosage: 81 mg, UNK
  4. METOPROLOL [Concomitant]
     Dosage: 50 mg, UNK
  5. CRESTOR [Concomitant]
     Dosage: 10 mg, UNK
  6. MULTIVITAMINS, PLAIN [Concomitant]
     Dosage: UNK

REACTIONS (1)
  - Nasopharyngitis [Unknown]
